FAERS Safety Report 5218156-X (Version None)
Quarter: 2007Q1

REPORT INFORMATION
  Report Type: 
  Country: None (occurrence: None)
  Receive Date: 20061130
  Receipt Date: 20060919
  Transmission Date: 20070707
  Serious: Yes (Hospitalization)
  Sender: FDA-Public Use
  Company Number: US200609002080

PATIENT
  Age: 45 Year
  Sex: Male
  Weight: 100.2 kg

DRUGS (8)
  1. ZYPREXA [Suspect]
     Indication: DRUG USE FOR UNKNOWN INDICATION
     Dosage: ORAL
     Route: 048
     Dates: start: 19960101, end: 20060101
  2. ARIPIPRAZOLE [Concomitant]
  3. QUETIAPINE FUMARATE [Concomitant]
  4. RISPERIDONE [Concomitant]
  5. CARBAMAZEPINE [Concomitant]
  6. DIVALPROEX SODIUM [Concomitant]
  7. PAROXETINE [Concomitant]
  8. SERTRALINE [Concomitant]

REACTIONS (2)
  - DIABETES MELLITUS [None]
  - GLYCOSURIA [None]
